FAERS Safety Report 18733224 (Version 3)
Quarter: 2021Q1

REPORT INFORMATION
  Report Type: Spontaneous
  Country: US (occurrence: US)
  Receive Date: 20210113
  Receipt Date: 20210120
  Transmission Date: 20210419
  Serious: Yes (Hospitalization)
  Sender: FDA-Public Use
  Company Number: US-ELI_LILLY_AND_COMPANY-US202101004751

PATIENT
  Age: 44 Year
  Sex: Female

DRUGS (5)
  1. HUMALOG [Suspect]
     Active Substance: INSULIN LISPRO
     Dosage: 27 U, TID
     Route: 065
  2. LANTUS [Concomitant]
     Active Substance: INSULIN GLARGINE
     Indication: PRODUCT USED FOR UNKNOWN INDICATION
     Dosage: UNK
     Dates: start: 202010
  3. HUMALOG [Suspect]
     Active Substance: INSULIN LISPRO
     Indication: PRODUCT USED FOR UNKNOWN INDICATION
     Dosage: 8 U, TID
     Route: 065
     Dates: start: 202010
  4. EFFEXOR [Suspect]
     Active Substance: VENLAFAXINE HYDROCHLORIDE
     Indication: DIABETIC NEUROPATHY
     Dosage: UNK, UNKNOWN
     Route: 065
     Dates: start: 202010, end: 202010
  5. AMARYL [Concomitant]
     Active Substance: GLIMEPIRIDE
     Indication: TYPE 2 DIABETES MELLITUS
     Dosage: UNK, DAILY

REACTIONS (12)
  - Blood potassium decreased [Recovering/Resolving]
  - Blood glucose increased [Unknown]
  - Blood glucose fluctuation [Unknown]
  - Transient ischaemic attack [Recovering/Resolving]
  - Injection site pain [Unknown]
  - Seizure [Recovering/Resolving]
  - Blood sodium decreased [Recovering/Resolving]
  - Blood triglycerides decreased [Recovering/Resolving]
  - Electrolyte imbalance [Recovering/Resolving]
  - Blood magnesium decreased [Recovering/Resolving]
  - Diabetic neuropathy [Unknown]
  - Gastric disorder [Unknown]

NARRATIVE: CASE EVENT DATE: 202010
